FAERS Safety Report 15670353 (Version 1)
Quarter: 2018Q4

REPORT INFORMATION
  Report Type: Spontaneous
  Country: US (occurrence: US)
  Receive Date: 20181129
  Receipt Date: 20181129
  Transmission Date: 20190205
  Serious: Yes (Hospitalization)
  Sender: FDA-Public Use
  Company Number: US-PFIZER INC-2018480612

PATIENT
  Age: 27 Year
  Sex: Male
  Weight: 52.15 kg

DRUGS (1)
  1. XANAX [Suspect]
     Active Substance: ALPRAZOLAM
     Dosage: UNK
     Dates: end: 20181111

REACTIONS (8)
  - Depression [Unknown]
  - Aggression [Unknown]
  - Paranoia [Unknown]
  - Drug withdrawal syndrome [Unknown]
  - Intentional product misuse [Unknown]
  - Psychotic disorder [Unknown]
  - Hallucination [Unknown]
  - Crying [Unknown]

NARRATIVE: CASE EVENT DATE: 20181111
